FAERS Safety Report 9318412 (Version 1)
Quarter: 2013Q2

REPORT INFORMATION
  Report Type: Spontaneous
  Country: US (occurrence: US)
  Receive Date: 20130530
  Receipt Date: 20130530
  Transmission Date: 20140414
  Serious: No
  Sender: FDA-Public Use
  Company Number: US-GLAXOSMITHKLINE-A1013073A

PATIENT
  Age: 9 Year
  Sex: Female

DRUGS (2)
  1. VENTOLIN [Suspect]
     Indication: COUGH
     Dosage: 2PUFF FOUR TIMES PER DAY
     Route: 055
     Dates: start: 20130205
  2. FLONASE [Concomitant]

REACTIONS (1)
  - Drug ineffective [Not Recovered/Not Resolved]
